FAERS Safety Report 20854126 (Version 2)
Quarter: 2022Q2

REPORT INFORMATION
  Report Type: Spontaneous
  Country: IN (occurrence: IN)
  Receive Date: 20220520
  Receipt Date: 20220617
  Transmission Date: 20220721
  Serious: Yes (Other)
  Sender: FDA-Public Use
  Company Number: IN-PFIZER INC-202101566791

PATIENT
  Age: 68 Year
  Sex: Female

DRUGS (3)
  1. PALBOCICLIB [Suspect]
     Active Substance: PALBOCICLIB
     Dosage: 125 MG, 1X/DAY
     Route: 048
     Dates: start: 20210531, end: 20211103
  2. PALBOCICLIB [Suspect]
     Active Substance: PALBOCICLIB
     Dosage: 125 MG, CYCLIC (125MG OD X 3WKS THEN 1 WK OFF X 3 MONTHS)
     Route: 048
  3. LETROZOLE [Concomitant]
     Active Substance: LETROZOLE
     Dosage: 2.5 MG, 1X/DAY

REACTIONS (16)
  - Eosinophil count decreased [Unknown]
  - Hot flush [Unknown]
  - Basophil percentage increased [Unknown]
  - Haematocrit decreased [Unknown]
  - White blood cell count decreased [Unknown]
  - Red blood cell count decreased [Unknown]
  - Mean cell volume increased [Unknown]
  - Mean cell haemoglobin increased [Unknown]
  - Platelet count decreased [Unknown]
  - Red cell distribution width increased [Unknown]
  - Neutrophil count decreased [Unknown]
  - Lymphocyte count increased [Unknown]
  - Haemoglobin decreased [Unknown]
  - Monocyte count increased [Unknown]
  - Pruritus [Unknown]
  - Rash [Unknown]
